FAERS Safety Report 20165655 (Version 1)
Quarter: 2021Q4

REPORT INFORMATION
  Report Type: Spontaneous
  Country: FR (occurrence: FR)
  Receive Date: 20211209
  Receipt Date: 20211209
  Transmission Date: 20220304
  Serious: Yes (Hospitalization)
  Sender: FDA-Public Use
  Company Number: None

PATIENT
  Age: 77 Year
  Sex: Female

DRUGS (3)
  1. TASIGNA [Suspect]
     Active Substance: NILOTINIB
     Indication: Acute lymphocytic leukaemia
     Dosage: 600 MG,QD
     Route: 048
     Dates: start: 20190410, end: 20211111
  2. DASATINIB [Suspect]
     Active Substance: DASATINIB
     Indication: Acute lymphocytic leukaemia
     Dosage: UNK (INCONNUE)
     Route: 048
     Dates: start: 20170607, end: 20190301
  3. IMATINIB MESYLATE [Suspect]
     Active Substance: IMATINIB MESYLATE
     Indication: Acute lymphocytic leukaemia
     Dosage: UNK (INCONNUE)
     Route: 048
     Dates: start: 201610, end: 20170607

REACTIONS (2)
  - Myocardial ischaemia [Recovered/Resolved with Sequelae]
  - Arteriosclerosis [Recovered/Resolved with Sequelae]

NARRATIVE: CASE EVENT DATE: 20211117
